FAERS Safety Report 8876388 (Version 1)
Quarter: 2012Q4

REPORT INFORMATION
  Report Type: 
  Country: US (occurrence: US)
  Receive Date: 20121023
  Receipt Date: 20121023
  Transmission Date: 20130627
  Serious: Yes (Life-Threatening)
  Sender: FDA-Public Use
  Company Number: US-ASTELLAS-2012US004973

PATIENT
  Age: 69 Year
  Sex: Male

DRUGS (1)
  1. LEXISCAN [Suspect]
     Indication: SCAN MYOCARDIAL PERFUSION
     Dosage: UNK
     Route: 042
     Dates: start: 20120523, end: 20120523

REACTIONS (6)
  - Hypotension [Recovered/Resolved]
  - Pallor [Recovered/Resolved]
  - Incoherent [Recovered/Resolved]
  - Dyskinesia [Recovered/Resolved]
  - Dizziness [Recovered/Resolved]
  - Presyncope [Recovered/Resolved]
